FAERS Safety Report 9607026 (Version 1)
Quarter: 2013Q4

REPORT INFORMATION
  Report Type: Spontaneous
  Country: FR (occurrence: FR)
  Receive Date: 20131009
  Receipt Date: 20131009
  Transmission Date: 20140711
  Serious: Yes (Hospitalization)
  Sender: FDA-Public Use
  Company Number: FR-PFIZER INC-2013288349

PATIENT
  Age: 83 Year
  Sex: Female

DRUGS (5)
  1. CORDARONE [Suspect]
     Dosage: 200 MG, DAILY
     Route: 048
     Dates: end: 20130821
  2. XARELTO [Interacting]
     Dosage: 1 U DAILY
     Route: 048
     Dates: end: 20130821
  3. SEROPRAM [Interacting]
     Dosage: UNK
     Route: 048
  4. XANAX [Concomitant]
     Dosage: UNK
     Dates: end: 20130821
  5. LAMICTAL [Concomitant]
     Dosage: UNK
     Dates: end: 20130821

REACTIONS (4)
  - Drug interaction [Recovered/Resolved]
  - Subcutaneous haematoma [Recovered/Resolved]
  - Fall [Unknown]
  - Head injury [Unknown]
